FAERS Safety Report 19793446 (Version 1)
Quarter: 2021Q3

REPORT INFORMATION
  Report Type: Spontaneous
  Country: US (occurrence: US)
  Receive Date: 20210906
  Receipt Date: 20210906
  Transmission Date: 20211014
  Serious: Yes (Other)
  Sender: FDA-Public Use
  Company Number: US-TOLMAR, INC.-21US029216

PATIENT
  Age: 32 Year
  Sex: Male

DRUGS (7)
  1. KETOCONAZOLE. [Suspect]
     Active Substance: KETOCONAZOLE
     Indication: DRY SKIN
     Dosage: UNK, 2/WEEK
     Route: 003
     Dates: start: 202107, end: 202107
  2. SIMVASTATIN. [Concomitant]
     Active Substance: SIMVASTATIN
     Indication: BLOOD CHOLESTEROL INCREASED
  3. FINASTERIDE. [Suspect]
     Active Substance: FINASTERIDE
     Indication: ALOPECIA
     Dosage: UNK
  4. KETOCONAZOLE. [Suspect]
     Active Substance: KETOCONAZOLE
     Indication: DANDRUFF
  5. BRIMONIDINE [Concomitant]
     Active Substance: BRIMONIDINE TARTRATE
     Indication: GLAUCOMA
  6. ADMELOG [Concomitant]
     Active Substance: INSULIN LISPRO
     Indication: DIABETES MELLITUS
  7. LOSARTAN. [Concomitant]
     Active Substance: LOSARTAN
     Indication: HYPERTENSION

REACTIONS (10)
  - Erectile dysfunction [Unknown]
  - Penile size reduced [Unknown]
  - Nausea [Unknown]
  - Bowel movement irregularity [Unknown]
  - Dysuria [Unknown]
  - Migraine [Recovered/Resolved]
  - Testicular swelling [Unknown]
  - Libido decreased [Unknown]
  - Dizziness [Unknown]
  - Vision blurred [Unknown]
